FAERS Safety Report 9462121 (Version 2)
Quarter: 2013Q4

REPORT INFORMATION
  Report Type: Spontaneous
  Country: US (occurrence: US)
  Receive Date: 20130816
  Receipt Date: 20131120
  Transmission Date: 20140711
  Serious: Yes (Hospitalization)
  Sender: FDA-Public Use
  Company Number: US-GILEAD-2013-0081389

PATIENT
  Age: 71 Year
  Sex: Female
  Weight: 66.21 kg

DRUGS (10)
  1. LETAIRIS [Suspect]
     Indication: PULMONARY ARTERIAL HYPERTENSION
     Dosage: 5 MG, QD
     Dates: start: 20100709
  2. PROTONIX [Concomitant]
  3. COUMADIN                           /00014802/ [Concomitant]
  4. VICODIN [Concomitant]
  5. NASONEX [Concomitant]
  6. LASIX                              /00032601/ [Concomitant]
  7. KLOR-CON [Concomitant]
  8. LIPITOR [Concomitant]
  9. HYDRALAZINE [Concomitant]
  10. CARVEDILOL [Concomitant]

REACTIONS (2)
  - Pain [Recovered/Resolved]
  - Dyspnoea [Recovered/Resolved]
